FAERS Safety Report 21064257 (Version 1)
Quarter: 2022Q3

REPORT INFORMATION
  Report Type: Spontaneous
  Country: BR (occurrence: BR)
  Receive Date: 20220711
  Receipt Date: 20220711
  Transmission Date: 20221027
  Serious: Yes (Other)
  Sender: FDA-Public Use
  Company Number: BR-BAXTER-2022BAX014091

PATIENT
  Age: 15 Year
  Sex: Female

DRUGS (2)
  1. SODIUM CHLORIDE [Suspect]
     Active Substance: SODIUM CHLORIDE
     Indication: Medication dilution
     Dosage: 200 ML OF 0.9% SALINE SOLUTION IN 60 MINUTES, EVERY 7 DAYS FOR A TOTAL OF 5 DOSES, ADMINISTERED VIA
     Route: 042
     Dates: start: 20220502, end: 20220502
  2. IRON [Suspect]
     Active Substance: IRON
     Indication: Iron deficiency anaemia
     Dosage: 2 AMPOULES DILUTED IN 200 ML OF 0.9% SALINE SOLUTION IN 60 MINUTES, EVERY 7 DAYS FOR A TOTAL OF 5 DO
     Route: 042
     Dates: start: 20220502, end: 20220502

REACTIONS (3)
  - Nausea [Recovered/Resolved]
  - Oedema peripheral [Recovered/Resolved]
  - Off label use [Unknown]

NARRATIVE: CASE EVENT DATE: 20220502
